FAERS Safety Report 7055933-7 (Version None)
Quarter: 2010Q4

REPORT INFORMATION
  Report Type: 
  Country: None (occurrence: None)
  Receive Date: 20101021
  Receipt Date: 20101012
  Transmission Date: 20110411
  Serious: Yes (Hospitalization)
  Sender: FDA-Public Use
  Company Number: A0764946A

PATIENT
  Age: 55 Year
  Sex: Female
  Weight: 88.6 kg

DRUGS (2)
  1. AVANDIA [Suspect]
     Indication: TYPE 2 DIABETES MELLITUS
     Dosage: 4MG TWICE PER DAY
     Route: 048
     Dates: start: 20000101, end: 20050101
  2. AVANDARYL [Suspect]
     Indication: TYPE 2 DIABETES MELLITUS
     Route: 048
     Dates: start: 20050101, end: 20070701

REACTIONS (7)
  - ASTHENIA [None]
  - FALL [None]
  - HUMERUS FRACTURE [None]
  - MOVEMENT DISORDER [None]
  - PROCEDURAL PAIN [None]
  - PRURITUS [None]
  - SCAR [None]
